FAERS Safety Report 23840931 (Version 1)
Quarter: 2024Q2

REPORT INFORMATION
  Report Type: Spontaneous
  Country: US (occurrence: US)
  Receive Date: 20240510
  Receipt Date: 20240510
  Transmission Date: 20240716
  Serious: No
  Sender: FDA-Public Use
  Company Number: US-AMGEN-USASP2024092068

PATIENT
  Sex: Female

DRUGS (3)
  1. OTEZLA [Suspect]
     Active Substance: APREMILAST
     Indication: Product used for unknown indication
     Dosage: 20-30 MILLIGRAM QD
     Route: 065
     Dates: start: 20240408, end: 2024
  2. OTEZLA [Suspect]
     Active Substance: APREMILAST
     Dosage: TWO TABLETS
     Route: 065
     Dates: start: 2024, end: 2024
  3. OTEZLA [Suspect]
     Active Substance: APREMILAST
     Dosage: ONE TABLETS
     Route: 065
     Dates: start: 2024

REACTIONS (2)
  - Constipation [Unknown]
  - Nausea [Unknown]

NARRATIVE: CASE EVENT DATE: 20240101
